FAERS Safety Report 4405408-6 (Version None)
Quarter: 2004Q3

REPORT INFORMATION
  Report Type: 
  Country: None (occurrence: None)
  Receive Date: 20040723
  Receipt Date: 20030812
  Transmission Date: 20050211
  Serious: No
  Sender: FDA-Public Use
  Company Number: US-GLAXOSMITHKLINE-A0420820A

PATIENT
  Age: 54 Year
  Sex: Female

DRUGS (5)
  1. AVANDIA [Suspect]
     Dosage: 4MG TWICE PER DAY
     Route: 048
     Dates: start: 20030101
  2. DIOVAN [Concomitant]
  3. GLUCOVANCE [Concomitant]
  4. LEVOXYL [Concomitant]
  5. CELEBREX [Concomitant]

REACTIONS (3)
  - HYPOGLYCAEMIA [None]
  - JOINT SWELLING [None]
  - WEIGHT INCREASED [None]
